FAERS Safety Report 9057200 (Version 2)
Quarter: 2013Q1

REPORT INFORMATION
  Report Type: Spontaneous
  Country: CA (occurrence: CA)
  Receive Date: 20130131
  Receipt Date: 20130228
  Transmission Date: 20140127
  Serious: Yes (Other)
  Sender: FDA-Public Use
  Company Number: CA-ROCHE-1185717

PATIENT
  Age: 48 None
  Sex: Female

DRUGS (3)
  1. XOLAIR [Suspect]
     Indication: ASTHMA
     Route: 058
     Dates: start: 20090402
  2. XOLAIR [Suspect]
     Route: 058
     Dates: start: 20130125
  3. XOLAIR [Suspect]
     Route: 058
     Dates: start: 20130222

REACTIONS (2)
  - Hypertension [Unknown]
  - Lower respiratory tract infection [Unknown]
